FAERS Safety Report 8172048-5 (Version None)
Quarter: 2012Q1

REPORT INFORMATION
  Report Type: 
  Country: None (occurrence: None)
  Receive Date: 20120228
  Receipt Date: 20120222
  Transmission Date: 20120608
  Serious: Yes (Hospitalization)
  Sender: FDA-Public Use
  Company Number: IT-ABBOTT-12P-083-0907621-00

PATIENT
  Sex: Male

DRUGS (3)
  1. AKINETON [Suspect]
     Indication: INTENTIONAL OVERDOSE
     Dosage: 6 POSOLOGICAL UNIT
     Route: 048
     Dates: start: 20120126, end: 20120126
  2. TRAZODONE HCL [Concomitant]
     Indication: DEPRESSION
  3. TRAZODONE HCL [Suspect]
     Indication: INTENTIONAL OVERDOSE
     Dosage: 10 POSOLOGICAL UNIT
     Route: 048
     Dates: start: 20120125, end: 20120125

REACTIONS (1)
  - BRADYPHRENIA [None]
